FAERS Safety Report 24874769 (Version 4)
Quarter: 2025Q3

REPORT INFORMATION
  Report Type: Report from Study
  Country: US (occurrence: US)
  Receive Date: 20250122
  Receipt Date: 20250910
  Transmission Date: 20251021
  Serious: Yes (Other)
  Sender: UCB
  Company Number: US-UCBSA-2024005448

PATIENT
  Sex: Male
  Weight: 30.8 kg

DRUGS (16)
  1. FINTEPLA [Interacting]
     Active Substance: FENFLURAMINE
     Indication: Lennox-Gastaut syndrome
     Dosage: 5 MILLILITER, 2X/DAY (BID)
     Dates: start: 20230923
  2. FINTEPLA [Interacting]
     Active Substance: FENFLURAMINE
     Dosage: 5 MILLILITER, 2X/DAY (BID)
  3. FINTEPLA [Interacting]
     Active Substance: FENFLURAMINE
     Dosage: 7 MILLILITER, 2X/DAY (BID)
  4. FINTEPLA [Interacting]
     Active Substance: FENFLURAMINE
     Dosage: 7 MILLILITER, 2X/DAY (BID)
  5. FINTEPLA [Interacting]
     Active Substance: FENFLURAMINE
     Dosage: 7 MILLILITER, 2X/DAY (BID)
  6. FINTEPLA [Interacting]
     Active Substance: FENFLURAMINE
     Dosage: 7 MILLILITER, 2X/DAY (BID)
  7. FINTEPLA [Interacting]
     Active Substance: FENFLURAMINE
     Dosage: 7 MILLILITER, 2X/DAY (BID)
  8. FINTEPLA [Interacting]
     Active Substance: FENFLURAMINE
     Route: 048
     Dates: start: 20250818
  9. BROMFED DM [Interacting]
     Active Substance: BROMPHENIRAMINE MALEATE\DEXTROMETHORPHAN HYDROBROMIDE\PSEUDOEPHEDRINE HYDROCHLORIDE
     Indication: Nasopharyngitis
  10. CLOBAZAM [Concomitant]
     Active Substance: CLOBAZAM
     Indication: Seizure
  11. CLOBAZAM [Concomitant]
     Active Substance: CLOBAZAM
     Dosage: 1 MILLILITER, 2X/DAY (BID)
     Dates: start: 202410
  12. CLOBAZAM [Concomitant]
     Active Substance: CLOBAZAM
     Dosage: 2 MILLILITER, 2X/DAY (BID)
     Dates: start: 202410
  13. KLONOPIN [Concomitant]
     Active Substance: CLONAZEPAM
     Indication: Insomnia
  14. DIAZEPAM [Concomitant]
     Active Substance: DIAZEPAM
     Dates: start: 20250726, end: 20250823
  15. OMEPRAZOLE [Concomitant]
     Active Substance: OMEPRAZOLE
     Indication: Product used for unknown indication
     Dates: start: 20250823
  16. EPIDIOLEX [Concomitant]
     Active Substance: CANNABIDIOL
     Indication: Seizure
     Dosage: 3 MILLILITER, 2X/DAY (BID)

REACTIONS (10)
  - Seizure [Recovered/Resolved]
  - Vagal nerve stimulator implantation [Not Recovered/Not Resolved]
  - Skin infection [Not Recovered/Not Resolved]
  - Somnolence [Unknown]
  - Nasopharyngitis [Not Recovered/Not Resolved]
  - Drug interaction [Not Recovered/Not Resolved]
  - Off label use [Unknown]
  - Overdose [Unknown]
  - Extra dose administered [Unknown]
  - Intentional dose omission [Unknown]

NARRATIVE: CASE EVENT DATE: 20240101
